FAERS Safety Report 26051304 (Version 1)
Quarter: 2025Q4

REPORT INFORMATION
  Report Type: Report from Study
  Country: CA (occurrence: CA)
  Receive Date: 20251117
  Receipt Date: 20251117
  Transmission Date: 20260118
  Serious: Yes (Death)
  Sender: ROCHE
  Company Number: CA-ROCHE-10000434203

PATIENT
  Age: 75 Year
  Sex: Male

DRUGS (1)
  1. VABYSMO [Suspect]
     Active Substance: FARICIMAB-SVOA
     Indication: Diabetic retinal oedema
     Route: 065
     Dates: start: 20230113, end: 20251110

REACTIONS (1)
  - Death [Fatal]
